FAERS Safety Report 15681065 (Version 1)
Quarter: 2018Q4

REPORT INFORMATION
  Report Type: Spontaneous
  Country: US (occurrence: US)
  Receive Date: 20181120
  Receipt Date: 20181120
  Transmission Date: 20190205
  Serious: Yes (Hospitalization)
  Sender: FDA-Public Use
  Company Number: None

PATIENT
  Age: 52 Year
  Sex: Female
  Weight: 101.6 kg

DRUGS (7)
  1. IVF [Concomitant]
  2. PALBOCICLIB [Suspect]
     Active Substance: PALBOCICLIB
     Route: 048
  3. ACETAMINOPHEN. [Concomitant]
     Active Substance: ACETAMINOPHEN
  4. LETROZOLE. [Suspect]
     Active Substance: LETROZOLE
     Dosage: ?          OTHER DOSE:2.5MG;?
     Route: 048
  5. MELATONIN [Concomitant]
     Active Substance: MELATONIN
  6. AMLODIPINE [Concomitant]
     Active Substance: AMLODIPINE BESYLATE
  7. PROCHLORPERAZINE. [Concomitant]
     Active Substance: PROCHLORPERAZINE

REACTIONS (3)
  - Acute kidney injury [None]
  - Hypophagia [None]
  - Diarrhoea [None]

NARRATIVE: CASE EVENT DATE: 20181116
